FAERS Safety Report 9700244 (Version 1)
Quarter: 2013Q4

REPORT INFORMATION
  Report Type: Spontaneous
  Country: DE (occurrence: DE)
  Receive Date: 20131121
  Receipt Date: 20131121
  Transmission Date: 20140711
  Serious: Yes (Other)
  Sender: FDA-Public Use
  Company Number: DE-JNJFOC-20131109921

PATIENT
  Age: 15 Year
  Sex: Female
  Weight: 66.5 kg

DRUGS (2)
  1. RIVAROXABAN [Suspect]
     Indication: DEEP VEIN THROMBOSIS
     Route: 048
  2. NEO-EUNOMIN [Suspect]
     Indication: CHEMICAL CONTRACEPTION
     Route: 065

REACTIONS (2)
  - Deep vein thrombosis [Recovering/Resolving]
  - Off label use [Unknown]
